FAERS Safety Report 10203424 (Version 2)
Quarter: 2014Q2

REPORT INFORMATION
  Report Type: Spontaneous
  Country: US (occurrence: US)
  Receive Date: 20140529
  Receipt Date: 20140529
  Transmission Date: 20141212
  Serious: No
  Sender: FDA-Public Use
  Company Number: US-009507513-2011SP050094

PATIENT
  Age: 30 Year
  Sex: Female
  Weight: 92.97 kg

DRUGS (5)
  1. IMPLANON [Suspect]
     Indication: CONTRACEPTION
     Dosage: 68 MG/3 YEARS IMPLANT
     Route: 059
     Dates: start: 20110505
  2. TRAMADOL HYDROCHLORIDE [Concomitant]
  3. GABAPENTIN [Concomitant]
  4. METFORMIN [Concomitant]
  5. ALBUTEROL [Concomitant]

REACTIONS (6)
  - Burning sensation [Not Recovered/Not Resolved]
  - Hormone level abnormal [Not Recovered/Not Resolved]
  - Device difficult to use [Unknown]
  - Scar [Unknown]
  - Incorrect drug administration duration [Unknown]
  - Wrong technique in drug usage process [Unknown]
